FAERS Safety Report 5498028-6 (Version None)
Quarter: 2007Q4

REPORT INFORMATION
  Report Type: 
  Country: None (occurrence: None)
  Receive Date: 20071018
  Receipt Date: 20070109
  Transmission Date: 20080405
  Serious: Yes (Other)
  Sender: FDA-Public Use
  Company Number: 2005129869

PATIENT
  Age: 32 Year
  Sex: Female

DRUGS (6)
  1. NEURONTIN [Suspect]
     Indication: PAIN
     Dosage: 1200 MG (600 MG, 2 IN 1 D)
     Dates: start: 20040101
  2. PERCOCET [Concomitant]
  3. SEROQUEL [Concomitant]
  4. EFFEXOR-XR                     (VENLAPAXINE HYDROCHLORIDE) [Concomitant]
  5. WELLBUTRIN XL [Concomitant]
  6. ATIVAN [Concomitant]

REACTIONS (9)
  - AGGRESSION [None]
  - AGITATION [None]
  - DEPRESSION [None]
  - DISTURBANCE IN ATTENTION [None]
  - DRUG INEFFECTIVE [None]
  - OVERDOSE [None]
  - PANIC ATTACK [None]
  - SUICIDE ATTEMPT [None]
  - THINKING ABNORMAL [None]
